FAERS Safety Report 8878823 (Version 2)
Quarter: 2012Q4

REPORT INFORMATION
  Report Type: 
  Country: BR (occurrence: BR)
  Receive Date: 20121026
  Receipt Date: 20121102
  Transmission Date: 20130627
  Serious: Yes (Death)
  Sender: FDA-Public Use
  Company Number: BR-PFIZER INC-2012267712

PATIENT
  Age: 51 Year
  Sex: Male

DRUGS (1)
  1. SUTENT [Suspect]
     Indication: RENAL CELL CARCINOMA
     Dosage: 37.5 mg, unspecified frequency (cycle 4 for 2)
     Route: 048
     Dates: start: 20120627

REACTIONS (2)
  - Disease progression [Fatal]
  - Renal cell carcinoma [Fatal]
